FAERS Safety Report 9359887 (Version 1)
Quarter: 2013Q2

REPORT INFORMATION
  Report Type: Spontaneous
  Country: US (occurrence: US)
  Receive Date: 20130621
  Receipt Date: 20130621
  Transmission Date: 20140414
  Serious: No
  Sender: FDA-Public Use
  Company Number: US-US-EMD SERONO, INC.-7152047

PATIENT
  Age: 58 Year
  Sex: Female
  Weight: 65 kg

DRUGS (2)
  1. REBIF [Suspect]
     Indication: MULTIPLE SCLEROSIS
     Route: 058
     Dates: start: 20100729, end: 20100817
  2. REBIF [Suspect]
     Route: 058
     Dates: start: 20100820

REACTIONS (2)
  - Cough [Not Recovered/Not Resolved]
  - Headache [Not Recovered/Not Resolved]
